FAERS Safety Report 6599197-7 (Version None)
Quarter: 2010Q1

REPORT INFORMATION
  Report Type: 
  Country: None (occurrence: None)
  Receive Date: 20100212
  Receipt Date: 20090917
  Transmission Date: 20100710
  Serious: No
  Sender: FDA-Public Use
  Company Number: 2009-00617

PATIENT
  Age: 78 Year
  Sex: Female
  Weight: 74.8435 kg

DRUGS (8)
  1. ZICAM COLD REMEDY ORAL MIST [Suspect]
     Dosage: ONE DOSE - ONE DOSE
     Dates: start: 20090916, end: 20090916
  2. COUMADIN [Concomitant]
  3. DIGOXIN [Concomitant]
  4. EFFEXOR [Concomitant]
  5. VESICARE [Concomitant]
  6. PRILOSEC [Concomitant]
  7. TOPROL-XL [Concomitant]
  8. MULTI-VITAMIN [Concomitant]

REACTIONS (1)
  - AGEUSIA [None]
